FAERS Safety Report 21483010 (Version 1)
Quarter: 2022Q4

REPORT INFORMATION
  Report Type: Report from Study
  Country: US (occurrence: US)
  Receive Date: 20221020
  Receipt Date: 20221020
  Transmission Date: 20230112
  Serious: No
  Sender: FDA-Public Use
  Company Number: US-ABBVIE-4133853

PATIENT
  Sex: Female

DRUGS (24)
  1. VENCLEXTA [Suspect]
     Active Substance: VENETOCLAX
     Indication: Breast cancer female
     Dosage: TAKE WITH MEAL AND WATER AT THE SAME TIME EACH DAY, 200 MG ONCE DAILY WEEK 4.
     Route: 048
  2. VENCLEXTA [Suspect]
     Active Substance: VENETOCLAX
     Indication: Breast cancer female
     Dosage: 50MG ONCE DAILY WEEK 2,
     Route: 048
  3. VENCLEXTA [Suspect]
     Active Substance: VENETOCLAX
     Indication: Breast cancer female
     Dosage: 20 MG STARTING PACK. TAKE 20MG ONCE DAILY WEEK-1,
     Route: 048
  4. VENCLEXTA [Suspect]
     Active Substance: VENETOCLAX
     Indication: Breast cancer female
     Dosage: 200 MILLIGRAM TAKE 2 TABLETS FOR 14 DAYS ON AND 14 DAYS OFF.
     Route: 048
  5. VENCLEXTA [Suspect]
     Active Substance: VENETOCLAX
     Indication: Breast cancer female
     Dosage: 100 MG 1 TABLET ONCE DAILY ON DAY 1 . TAKE WITH MEAL AND WATER AT THE SAME TIME EACH DAY
     Route: 048
  6. INSULIN DEGLUDEC [Concomitant]
     Active Substance: INSULIN DEGLUDEC
     Indication: Product used for unknown indication
     Dosage: 100UNIT/ML DOSE: 3ML AS DIRECTED
     Route: 058
  7. ESCITALOPRAM [Concomitant]
     Active Substance: ESCITALOPRAM OXALATE
     Indication: Product used for unknown indication
     Route: 048
  8. CYCLOBENZAPRINE [Concomitant]
     Active Substance: CYCLOBENZAPRINE
     Indication: Product used for unknown indication
     Dosage: PRN
     Route: 048
  9. LIDOCAINE\PRILOCAINE [Concomitant]
     Active Substance: LIDOCAINE\PRILOCAINE
     Indication: Product used for unknown indication
     Dosage: LIDOCAINE 2.5%-PRILOCAINE 2.5% TOPICAL CREAM ADHESIVE SILICONE KIT
  10. ACYCLOVIR [Concomitant]
     Active Substance: ACYCLOVIR
     Indication: Product used for unknown indication
     Route: 048
  11. CIPRO [Concomitant]
     Active Substance: CIPROFLOXACIN HYDROCHLORIDE
     Indication: Product used for unknown indication
     Dosage: 1 TAB FOR 7 DAYS
     Route: 048
  12. PRAVASTATIN [Concomitant]
     Active Substance: PRAVASTATIN
     Indication: Product used for unknown indication
     Route: 048
  13. ATOVAQUONE [Concomitant]
     Active Substance: ATOVAQUONE
     Indication: Product used for unknown indication
     Dosage: 750MG/5ML SUSPENSION
     Route: 048
  14. SIROLIMUS [Concomitant]
     Active Substance: SIROLIMUS
     Indication: Product used for unknown indication
     Dosage: 3 PO EVERY EVENING
     Route: 048
  15. METFORMIN [Concomitant]
     Active Substance: METFORMIN HYDROCHLORIDE
     Indication: Product used for unknown indication
     Dosage: 2 TAB
     Route: 048
  16. D3-50 cholecalciferol [Concomitant]
     Indication: Product used for unknown indication
     Dosage: (50000 UNIT) CAPSULE 1 PO Q EVERY WEDNESDAY
     Route: 048
  17. HYDROCHLOROTHIAZIDE\VALSARTAN [Concomitant]
     Active Substance: HYDROCHLOROTHIAZIDE\VALSARTAN
     Indication: Product used for unknown indication
     Dosage: VALSARTAN 320MG-HYDROCHLOROTHIAZIDE 25MG TABLET (1 PO EVERY DAY)
     Route: 048
  18. TAMOXIFEN [Concomitant]
     Active Substance: TAMOXIFEN
     Indication: Product used for unknown indication
     Route: 048
  19. CARVEDILOL [Concomitant]
     Active Substance: CARVEDILOL
     Indication: Product used for unknown indication
     Route: 048
  20. CALCIUM CARBONATE [Concomitant]
     Active Substance: CALCIUM CARBONATE
     Indication: Product used for unknown indication
     Route: 048
  21. ALLOPURINOL [Concomitant]
     Active Substance: ALLOPURINOL
     Indication: Product used for unknown indication
     Route: 048
  22. Women^s complex [Concomitant]
     Indication: Product used for unknown indication
     Route: 048
  23. MELATONIN [Concomitant]
     Active Substance: MELATONIN
     Indication: Product used for unknown indication
     Dosage: PRN
     Route: 048
  24. EPINEPHRINE [Concomitant]
     Active Substance: EPINEPHRINE
     Indication: Hypersensitivity
     Dosage: 0.3MG/0.3ML INJECTION SYRINGE PRN

REACTIONS (1)
  - Off label use [Unknown]
